FAERS Safety Report 8853373 (Version 2)
Quarter: 2013Q4

REPORT INFORMATION
  Report Type: Spontaneous
  Country: FR (occurrence: FR)
  Receive Date: 20121022
  Receipt Date: 20131017
  Transmission Date: 20140711
  Serious: Yes (Life-Threatening, Hospitalization)
  Sender: FDA-Public Use
  Company Number: FR-ROXANE LABORATORIES, INC.-2012-RO-02029RO

PATIENT
  Age: 37 Year
  Sex: Male

DRUGS (3)
  1. BUPRENORPHINE HYDROCHLORIDE [Suspect]
     Indication: DRUG DEPENDENCE
     Dosage: 8 MG
  2. HEROIN [Suspect]
     Indication: DRUG DEPENDENCE
     Route: 045
  3. MARIJUANA [Suspect]

REACTIONS (2)
  - Suicide attempt [Unknown]
  - Acute psychosis [Recovered/Resolved]
